FAERS Safety Report 6862952-X (Version None)
Quarter: 2010Q2

REPORT INFORMATION
  Report Type: 
  Country: None (occurrence: None)
  Receive Date: 20100528
  Receipt Date: 20100413
  Transmission Date: 20101027
  Serious: No
  Sender: FDA-Public Use
  Company Number: 010129

PATIENT
  Sex: Female

DRUGS (3)
  1. LACOSAMIDE [Suspect]
     Indication: CONVULSION
     Dosage: ORAL
     Route: 048
  2. KEPPRA [Suspect]
     Indication: CONVULSION
     Dosage: ORAL
     Route: 048
  3. TOPAMAX [Concomitant]

REACTIONS (2)
  - FEELING HOT [None]
  - OEDEMA PERIPHERAL [None]
